FAERS Safety Report 18955152 (Version 3)
Quarter: 2021Q2

REPORT INFORMATION
  Report Type: Spontaneous
  Country: JP (occurrence: JP)
  Receive Date: 20210301
  Receipt Date: 20210610
  Transmission Date: 20210717
  Serious: No
  Sender: FDA-Public Use
  Company Number: JP-NIPPON SHINYAKU-NIP-2021-000006

PATIENT

DRUGS (3)
  1. VILTEPSO [Suspect]
     Active Substance: VILTOLARSEN
     Indication: DUCHENNE MUSCULAR DYSTROPHY
     Dosage: 80 MG/KG, QWK
     Route: 041
     Dates: start: 20200731
  2. PENLES [Concomitant]
     Active Substance: LIDOCAINE
     Indication: PRODUCT USED FOR UNKNOWN INDICATION
     Dosage: 2 DOSAGE FORM
     Route: 065
     Dates: start: 20200731
  3. RINDERON VG [Concomitant]
     Active Substance: BETAMETHASONE VALERATE\GENTAMICIN SULFATE
     Indication: PRURITUS
     Dosage: UNK
     Route: 065

REACTIONS (2)
  - Cardiac failure [Not Recovered/Not Resolved]
  - Proteinuria [Unknown]

NARRATIVE: CASE EVENT DATE: 20200911
